FAERS Safety Report 20329447 (Version 1)
Quarter: 2022Q1

REPORT INFORMATION
  Report Type: Other
  Country: SE (occurrence: SE)
  Receive Date: 20220112
  Receipt Date: 20220112
  Transmission Date: 20220423
  Serious: Yes (Hospitalization)
  Sender: FDA-Public Use
  Company Number: None

PATIENT

DRUGS (9)
  1. OMNIPAQUE [Suspect]
     Active Substance: IOHEXOL
     Indication: Computerised tomogram
     Dosage: 140 MGI/ML DILUTED IN WATER 1.5 LITERS, ONCE
     Route: 048
     Dates: start: 20211223, end: 20211223
  2. OMNIPAQUE [Suspect]
     Active Substance: IOHEXOL
     Indication: Product used for unknown indication
  3. OMNIPAQUE [Suspect]
     Active Substance: IOHEXOL
     Indication: Diagnostic procedure
     Dosage: UNK UNK, SINGLE
     Route: 042
     Dates: start: 20211223, end: 20211223
  4. OMNIPAQUE [Suspect]
     Active Substance: IOHEXOL
     Indication: Product used for unknown indication
  5. OMNIPAQUE [Suspect]
     Active Substance: IOHEXOL
     Indication: Computerised tomogram
     Dosage: UNK UNK, SINGLE
     Route: 042
     Dates: start: 20211223, end: 20211223
  6. OMNIPAQUE [Suspect]
     Active Substance: IOHEXOL
     Indication: Product used for unknown indication
  7. PRAMIPEXOLE TEVA [Concomitant]
     Dosage: 1.05 MG, 1X1
     Route: 048
     Dates: start: 20200901
  8. BETAPRED [Concomitant]
     Active Substance: BETAMETHASONE SODIUM PHOSPHATE
     Dosage: 0.5 MG, 16X1
     Route: 048
     Dates: start: 20211223, end: 20211223
  9. AMITRIPTYLINE [Concomitant]
     Active Substance: AMITRIPTYLINE
     Dosage: 25 MG, 2 TN
     Route: 048

REACTIONS (6)
  - Muscle spasms [Recovering/Resolving]
  - Back pain [Recovering/Resolving]
  - Aphasia [Recovering/Resolving]
  - Pruritus [Recovered/Resolved]
  - Rash pruritic [Recovered/Resolved]
  - Eye pruritus [Recovered/Resolved]

NARRATIVE: CASE EVENT DATE: 20211223
